FAERS Safety Report 19226943 (Version 1)
Quarter: 2021Q2

REPORT INFORMATION
  Report Type: Spontaneous
  Country: CA (occurrence: CA)
  Receive Date: 20210506
  Receipt Date: 20210506
  Transmission Date: 20210717
  Serious: Yes (Hospitalization, Other)
  Sender: FDA-Public Use
  Company Number: CA-ALLERGAN-2117139US

PATIENT
  Sex: Female
  Weight: 52 kg

DRUGS (6)
  1. MAGNESIUM [Concomitant]
     Active Substance: MAGNESIUM
     Indication: PREGNANCY
     Dosage: UNK
  2. PRENATAL VITAMINS [Concomitant]
     Active Substance: VITAMINS
     Indication: PREGNANCY
     Dosage: UNK
  3. VITAMIN D [Suspect]
     Active Substance: VITAMIN D NOS
     Indication: MULTIPLE SCLEROSIS
     Dosage: 10000 IU, QD
  4. SALOFALK [MESALAZINE] [Suspect]
     Active Substance: MESALAMINE
     Indication: COLITIS ULCERATIVE
     Dosage: UNK, QD
     Dates: start: 201712
  5. IRON [Concomitant]
     Active Substance: IRON
     Indication: PREGNANCY
     Dosage: UNK
  6. VITAMIN B COMPLEX [Concomitant]
     Active Substance: CYANOCOBALAMIN\DEXPANTHENOL\NIACINAMIDE\PYRIDOXINE HYDROCHLORIDE\RIBOFLAVIN 5^-PHOSPHATE SODIUM\THIAMINE HYDROCHLORIDE\VITAMIN B COMPLEX
     Indication: PREGNANCY
     Dosage: UNK

REACTIONS (2)
  - Pregnancy [Unknown]
  - Intestinal obstruction [Recovered/Resolved]

NARRATIVE: CASE EVENT DATE: 20201220
